FAERS Safety Report 9424127 (Version 2)
Quarter: 2013Q3

REPORT INFORMATION
  Report Type: Spontaneous
  Country: US (occurrence: US)
  Receive Date: 20130729
  Receipt Date: 20130829
  Transmission Date: 20140515
  Serious: No
  Sender: FDA-Public Use
  Company Number: US-009507513-1307USA014530

PATIENT
  Age: 25 Year
  Sex: Female
  Weight: 161.5 kg

DRUGS (2)
  1. NEXPLANON [Suspect]
     Dosage: 1 ROD
     Route: 059
     Dates: start: 20130722, end: 20130722
  2. NEXPLANON [Suspect]
     Dosage: 1 ROD
     Route: 059
     Dates: start: 20130722

REACTIONS (2)
  - Device difficult to use [Recovered/Resolved]
  - No adverse event [Unknown]
